FAERS Safety Report 8829470 (Version 1)
Quarter: 2012Q4

REPORT INFORMATION
  Report Type: 
  Country: SE (occurrence: SE)
  Receive Date: 20121008
  Receipt Date: 20121008
  Transmission Date: 20130627
  Serious: Yes (Hospitalization)
  Sender: FDA-Public Use
  Company Number: SE-PFIZER INC-2012244854

PATIENT
  Age: 28 Year
  Sex: Female

DRUGS (3)
  1. LYRICA [Suspect]
     Dosage: UNK
     Route: 048
     Dates: start: 20111006, end: 20120807
  2. OXASCAND [Concomitant]
     Dosage: UNK
  3. IMOVANE [Concomitant]
     Dosage: UNK

REACTIONS (1)
  - Drug abuse [Not Recovered/Not Resolved]
